FAERS Safety Report 5778736-X (Version None)
Quarter: 2008Q2

REPORT INFORMATION
  Report Type: 
  Country: None (occurrence: None)
  Receive Date: 20080617
  Receipt Date: 20080602
  Transmission Date: 20081010
  Serious: Yes (Other)
  Sender: FDA-Public Use
  Company Number: 028600

PATIENT
  Age: 25 Year
  Sex: Female

DRUGS (1)
  1. CLARAVIS(ISTOTRETINOIN) CAPSULE, 30MG [Suspect]
     Dosage: 30 MG, BID, ORAL
     Route: 048
     Dates: start: 20080502, end: 20080523

REACTIONS (3)
  - DRUG EXPOSURE DURING PREGNANCY [None]
  - PREGNANCY ON CONTRACEPTIVE [None]
  - UNINTENDED PREGNANCY [None]
